FAERS Safety Report 8402221-X (Version None)
Quarter: 2012Q2

REPORT INFORMATION
  Report Type: 
  Country: None (occurrence: None)
  Receive Date: 20120525
  Receipt Date: 20120521
  Transmission Date: 20120825
  Serious: Yes (Other)
  Sender: FDA-Public Use
  Company Number: 2011SP021077

PATIENT
  Sex: Female

DRUGS (4)
  1. BOCEPREVIR (SCH-503034) [Suspect]
     Indication: HEPATITIS C
     Dosage: 800 MG, TID
     Dates: start: 20110425, end: 20111213
  2. REBETOL [Suspect]
     Indication: HEPATITIS C
     Dosage: 400;600 MG, QD
     Dates: start: 20120201
  3. OXAZEPAM [Concomitant]
  4. PEG-INTRON [Suspect]
     Indication: HEPATITIS C
     Dosage: 100 MCG, QW, SC
     Route: 058
     Dates: end: 20120201

REACTIONS (14)
  - DEPRESSED MOOD [None]
  - FATIGUE [None]
  - ANAEMIA [None]
  - HYPERSOMNIA [None]
  - INAPPROPRIATE SCHEDULE OF DRUG ADMINISTRATION [None]
  - FEELING ABNORMAL [None]
  - AMNESIA [None]
  - ASTHENIA [None]
  - AGGRESSION [None]
  - PYREXIA [None]
  - DYSGEUSIA [None]
  - WEIGHT DECREASED [None]
  - MOOD SWINGS [None]
  - MALAISE [None]
